FAERS Safety Report 21706143 (Version 1)
Quarter: 2022Q4

REPORT INFORMATION
  Report Type: Spontaneous
  Country: GB (occurrence: GB)
  Receive Date: 20221209
  Receipt Date: 20221209
  Transmission Date: 20230113
  Serious: Yes (Other)
  Sender: FDA-Public Use
  Company Number: None

PATIENT
  Age: 83 Year
  Sex: Female
  Weight: 68 kg

DRUGS (13)
  1. FAMOTIDINE [Suspect]
     Active Substance: FAMOTIDINE
     Indication: Product used for unknown indication
     Dosage: 40 MILLIGRAM, BID
     Route: 065
     Dates: start: 20221014, end: 20221114
  2. AMLODIPINE [Concomitant]
     Active Substance: AMLODIPINE BESYLATE
     Dosage: UNK UNK, QD
     Route: 065
     Dates: start: 20220113
  3. AMOXICILLIN [Concomitant]
     Active Substance: AMOXICILLIN
     Indication: Infection
     Dosage: 1 DOSAGE FORM, TID (FOR 5 DAYS)
     Route: 065
     Dates: start: 20220914, end: 20220919
  4. BECONASE AQ [Concomitant]
     Active Substance: BECLOMETHASONE DIPROPIONATE MONOHYDRATE
     Dosage: 2 DOSAGE FORM, BID (TWO PUFFS TWICE DAILY)
     Route: 065
     Dates: start: 20220902, end: 20220916
  5. CLARITHROMYCIN [Concomitant]
     Active Substance: CLARITHROMYCIN
     Dosage: 1 DOSAGE FORM, BID (FOR 5 DAYS)
     Route: 065
     Dates: start: 20220912, end: 20220917
  6. AMOXICILLIN\CLAVULANATE POTASSIUM [Concomitant]
     Active Substance: AMOXICILLIN\CLAVULANATE POTASSIUM
     Dosage: 1 DOSAGE FORM, TID
     Route: 065
     Dates: start: 20220927, end: 20221002
  7. CHOLECALCIFEROL [Concomitant]
     Active Substance: CHOLECALCIFEROL
     Dosage: 1 DOSAGE FORM, QD
     Route: 065
     Dates: start: 20220726
  8. ISOPROPYL MYRISTATE\MINERAL OIL [Concomitant]
     Active Substance: ISOPROPYL MYRISTATE\MINERAL OIL
     Dosage: UNK (AS DIRECTED)
     Route: 065
     Dates: start: 20220113
  9. FYBOGEL [Concomitant]
     Active Substance: HERBALS\PLANTAGO OVATA SEED
     Dosage: UNK (TAKE ONE - TWO DAILY, AS NECESSARY)
     Route: 065
     Dates: start: 20220804
  10. HYDROCORTISONE [Concomitant]
     Active Substance: HYDROCORTISONE
     Dosage: UNK (APPLY AS DIRECTED)
     Route: 065
     Dates: start: 20221101, end: 20221108
  11. HYALURONATE SODIUM [Concomitant]
     Active Substance: HYALURONATE SODIUM
     Dosage: UNK (USE AS DIRECTED)
     Route: 065
     Dates: start: 20220804
  12. NIZATIDINE [Concomitant]
     Active Substance: NIZATIDINE
     Dosage: 1 DOSAGE FORM, BID
     Route: 065
     Dates: start: 20221017, end: 20221116
  13. CALCIUM CARBONATE\SODIUM ALGINATE\SODIUM BICARBONATE [Concomitant]
     Active Substance: CALCIUM CARBONATE\SODIUM ALGINATE\SODIUM BICARBONATE
     Dosage: 10 MILLILITER, QID
     Route: 065
     Dates: start: 20220927, end: 20221009

REACTIONS (2)
  - Rash erythematous [Recovering/Resolving]
  - Pruritus [Unknown]

NARRATIVE: CASE EVENT DATE: 20221014
